FAERS Safety Report 9901228 (Version 4)
Quarter: 2015Q2

REPORT INFORMATION
  Report Type: Spontaneous
  Country: US (occurrence: US)
  Receive Date: 20140217
  Receipt Date: 20150623
  Transmission Date: 20150821
  Serious: Yes (Hospitalization, Other)
  Sender: FDA-Public Use
  Company Number: US-BAYER-2014-024169

PATIENT
  Age: 28 Year
  Sex: Female
  Weight: 59 kg

DRUGS (1)
  1. MIRENA [Suspect]
     Active Substance: LEVONORGESTREL
     Indication: CONTRACEPTION
     Dosage: 20 MCG/24HR, CONT
     Route: 015
     Dates: start: 20081120, end: 20110110

REACTIONS (13)
  - Device breakage [None]
  - Emotional distress [None]
  - Medical device discomfort [None]
  - Procedural pain [None]
  - Pain [None]
  - Scar [None]
  - Device failure [None]
  - Device issue [None]
  - Infertility female [None]
  - Anxiety [None]
  - Uterine perforation [None]
  - Injury [None]
  - Depression [None]

NARRATIVE: CASE EVENT DATE: 20110110
